FAERS Safety Report 7927987-4 (Version None)
Quarter: 2011Q4

REPORT INFORMATION
  Report Type: 
  Country: None (occurrence: None)
  Receive Date: 20111118
  Receipt Date: 20111107
  Transmission Date: 20120403
  Serious: No
  Sender: FDA-Public Use
  Company Number: US-B.I. PHARMACEUTICALS,INC./RIDGEFIELD-2011-BP-23410BP

PATIENT
  Age: 80 Year
  Sex: Female

DRUGS (10)
  1. PRADAXA [Suspect]
     Indication: ATRIAL FIBRILLATION
     Dosage: 300 MG
     Route: 048
     Dates: start: 20110501
  2. VITAMIN D [Concomitant]
  3. CALCIUM [Concomitant]
  4. PREMARIN [Concomitant]
  5. ZOLPIDEM [Concomitant]
  6. ATENOLOL [Concomitant]
     Indication: HYPERTENSION
     Route: 048
  7. MULTI-VITAMIN [Concomitant]
  8. SYNTHROID [Concomitant]
     Indication: HYPOTHYROIDISM
     Route: 048
  9. PAROXETINE HCL [Concomitant]
     Indication: ANXIETY
     Dosage: 12.5 MG
     Route: 048
  10. UBIQUINOL [Concomitant]

REACTIONS (3)
  - ABDOMINAL DISCOMFORT [None]
  - NAUSEA [None]
  - DISCOMFORT [None]
